FAERS Safety Report 7804542-8 (Version None)
Quarter: 2011Q4

REPORT INFORMATION
  Report Type: 
  Country: None (occurrence: None)
  Receive Date: 20111010
  Receipt Date: 20100330
  Transmission Date: 20120403
  Serious: No
  Sender: FDA-Public Use
  Company Number: US-BAYER-201010491NA

PATIENT
  Age: 77 Year
  Sex: Female

DRUGS (7)
  1. AVELOX [Suspect]
     Indication: APHONIA
     Dosage: 400 MG, UNK
     Route: 048
     Dates: start: 20091102
  2. AVELOX [Suspect]
     Indication: COUGH
  3. AVELOX [Suspect]
     Indication: NASOPHARYNGITIS
  4. MYSOLINE [Concomitant]
     Indication: TREMOR
  5. AVELOX [Suspect]
     Indication: INFLUENZA
  6. IMMUNE GLOBULIN (HUMAN) [Concomitant]
     Route: 042
  7. ATENOLOL [Concomitant]
     Indication: CARDIAC FLUTTER

REACTIONS (9)
  - DIARRHOEA [None]
  - MALAISE [None]
  - TENDON DISORDER [None]
  - ADVERSE DRUG REACTION [None]
  - NAUSEA [None]
  - DRUG HYPERSENSITIVITY [None]
  - APHAGIA [None]
  - CONTUSION [None]
  - DEPRESSION [None]
